FAERS Safety Report 25710394 (Version 1)
Quarter: 2025Q3

REPORT INFORMATION
  Report Type: Spontaneous
  Country: SG (occurrence: SG)
  Receive Date: 20250821
  Receipt Date: 20250821
  Transmission Date: 20251020
  Serious: Yes (Hospitalization, Other)
  Sender: ROCHE
  Company Number: SG-ROCHE-10000367100

PATIENT
  Age: 67 Year
  Sex: Female

DRUGS (3)
  1. PHESGO [Suspect]
     Active Substance: HYALURONIDASE-ZZXF\PERTUZUMAB\TRASTUZUMAB
     Indication: Breast cancer
     Route: 065
  2. PHESGO [Suspect]
     Active Substance: HYALURONIDASE-ZZXF\PERTUZUMAB\TRASTUZUMAB
     Route: 042
  3. PERJETA [Concomitant]
     Active Substance: PERTUZUMAB
     Route: 042

REACTIONS (5)
  - Oxygen saturation decreased [Unknown]
  - Nasopharyngitis [Unknown]
  - Asthenia [Unknown]
  - Chills [Not Recovered/Not Resolved]
  - Toe operation [Recovered/Resolved]
